FAERS Safety Report 5026419-6 (Version None)
Quarter: 2006Q2

REPORT INFORMATION
  Report Type: 
  Country: None (occurrence: None)
  Receive Date: 20060426
  Receipt Date: 20060310
  Transmission Date: 20061013
  Serious: Yes (Other)
  Sender: FDA-Public Use
  Company Number: 2006037478

PATIENT
  Age: 62 Year
  Sex: Female

DRUGS (3)
  1. LYRICA [Suspect]
     Indication: NEURALGIA
     Dosage: (50 MG)
     Dates: start: 20060101
  2. INDERAL [Concomitant]
  3. ESTRADIOL [Concomitant]

REACTIONS (2)
  - DIZZINESS [None]
  - WEIGHT INCREASED [None]
